FAERS Safety Report 7758163-6 (Version None)
Quarter: 2011Q3

REPORT INFORMATION
  Report Type: 
  Country: None (occurrence: None)
  Receive Date: 20110919
  Receipt Date: 20110912
  Transmission Date: 20111222
  Serious: No
  Sender: FDA-Public Use
  Company Number: US-BIOGENIDEC-2011BI034755

PATIENT
  Age: 36 Year
  Sex: Female

DRUGS (4)
  1. AVONEX [Suspect]
     Indication: MULTIPLE SCLEROSIS
     Route: 030
     Dates: start: 20050301
  2. ADVIL LIQUI-GELS [Concomitant]
     Indication: PREMEDICATION
  3. AVONEX [Suspect]
     Route: 030
     Dates: end: 20050101
  4. TYLENOL-500 [Concomitant]
     Indication: PREMEDICATION

REACTIONS (5)
  - VOMITING [None]
  - MYALGIA [None]
  - FEELING HOT [None]
  - VERTIGO [None]
  - DIARRHOEA [None]
